FAERS Safety Report 8131945-7 (Version None)
Quarter: 2012Q1

REPORT INFORMATION
  Report Type: 
  Country: None (occurrence: None)
  Receive Date: 20120213
  Receipt Date: 20120206
  Transmission Date: 20120608
  Serious: Yes (Death, Disabling, Other)
  Sender: FDA-Public Use
  Company Number: US-CELGENEUS-163-21880-11121829

PATIENT
  Sex: Female
  Weight: 60 kg

DRUGS (12)
  1. IRON [Concomitant]
     Route: 065
  2. ASCORBIC ACID [Concomitant]
     Route: 065
  3. AMLODIPINE BESYLATE [Concomitant]
     Route: 065
  4. NAPROXEN (ALEVE) [Concomitant]
     Route: 065
  5. ACETAMINOPHEN [Concomitant]
     Route: 065
  6. REVLIMID [Suspect]
     Indication: MULTIPLE MYELOMA
     Route: 048
     Dates: start: 20111024
  7. ARANESP [Concomitant]
     Route: 065
     Dates: start: 20110719
  8. DECADRON [Concomitant]
     Dosage: 20 MILLIGRAM
     Route: 065
     Dates: start: 20111122
  9. PROTONIX [Concomitant]
     Route: 065
  10. REVLIMID [Suspect]
     Dosage: 10 MILLIGRAM
     Route: 048
     Dates: start: 20111122, end: 20111129
  11. RED BLOOD CELLS [Concomitant]
     Dosage: 2 UNITS
     Route: 041
     Dates: start: 20111117
  12. VITAMIN D [Concomitant]
     Route: 065

REACTIONS (5)
  - RENAL FAILURE CHRONIC [None]
  - DEATH [None]
  - ANAEMIA [None]
  - THROMBOCYTOPENIA [None]
  - DRUG ADMINISTRATION ERROR [None]
